FAERS Safety Report 7427596 (Version 43)
Quarter: 2018Q2

REPORT INFORMATION
  Report Type: Report from Study
  Country: CA (occurrence: CA)
  Receive Date: 20100622
  Receipt Date: 20180626
  Transmission Date: 20180711
  Serious: Yes (Hospitalization, Other)
  Sender: FDA-Public Use
  Company Number: PHHY2010CA38892

PATIENT
  Age: 79 Year
  Sex: Female

DRUGS (13)
  1. HYDROCHLOROTHIAZIDE. [Concomitant]
     Active Substance: HYDROCHLOROTHIAZIDE
     Indication: PRODUCT USED FOR UNKNOWN INDICATION
     Dosage: 25 MG, QD
     Route: 065
  2. SANDOSTATIN LAR DEPOT [Suspect]
     Active Substance: OCTREOTIDE ACETATE
     Dosage: 50 MG, (EVERY 3 WEEKS)
     Route: 030
     Dates: start: 20140429, end: 20160906
  3. ASPIRIN. [Concomitant]
     Active Substance: ASPIRIN
     Indication: PRODUCT USED FOR UNKNOWN INDICATION
     Dosage: UNK
     Route: 065
  4. DILAUDID [Concomitant]
     Active Substance: HYDROMORPHONE HYDROCHLORIDE
     Indication: PRODUCT USED FOR UNKNOWN INDICATION
     Dosage: 2 MG, Q4H PRN
     Route: 048
  5. SANDOSTATIN LAR DEPOT [Suspect]
     Active Substance: OCTREOTIDE ACETATE
     Dosage: 40 MG, EVERY 3 WEEKS
     Route: 030
     Dates: start: 20120624, end: 20140408
  6. BISO [Concomitant]
     Indication: PRODUCT USED FOR UNKNOWN INDICATION
     Route: 065
  7. OCTREOTIDE. [Suspect]
     Active Substance: OCTREOTIDE
     Indication: CARCINOID TUMOUR
     Dosage: 100 UG, TID PRN
     Route: 058
     Dates: start: 20161122, end: 20161126
  8. SANDOSTATIN LAR DEPOT [Suspect]
     Active Substance: OCTREOTIDE ACETATE
     Dosage: 60 MG, (EVERY 3 WEEKS)
     Route: 030
     Dates: start: 20160926
  9. SANDOSTATIN LAR DEPOT [Suspect]
     Active Substance: OCTREOTIDE ACETATE
     Dosage: 60 MG, (EVERY 3 WEEKS)
     Route: 030
  10. AVAPRO [Concomitant]
     Active Substance: IRBESARTAN
     Indication: PRODUCT USED FOR UNKNOWN INDICATION
     Dosage: 15 MG, BID
     Route: 065
  11. SANDOSTATIN LAR DEPOT [Suspect]
     Active Substance: OCTREOTIDE ACETATE
     Indication: CARCINOID TUMOUR
     Dosage: 30 MG, QMO (EVERY 4 WEEKS)
     Route: 030
     Dates: start: 20090320, end: 20090515
  12. SANDOSTATIN LAR DEPOT [Suspect]
     Active Substance: OCTREOTIDE ACETATE
     Dosage: 40 MG, QMO (EVERY 4 WEEKS)
     Route: 030
     Dates: start: 20090612, end: 20120603
  13. BISOPROLOL [Suspect]
     Active Substance: BISOPROLOL
     Indication: PRODUCT USED FOR UNKNOWN INDICATION
     Dosage: 5 MG, UNK
     Route: 065

REACTIONS (41)
  - Urinary tract infection [Unknown]
  - Pulmonary congestion [Recovering/Resolving]
  - Blood pressure increased [Unknown]
  - Blood pressure diastolic decreased [Unknown]
  - Muscular weakness [Unknown]
  - Abdominal pain upper [Recovered/Resolved]
  - Inappropriate schedule of drug administration [Unknown]
  - Pneumonia [Recovering/Resolving]
  - Cataract [Unknown]
  - Diarrhoea [Unknown]
  - Abdominal pain lower [Unknown]
  - Fall [Unknown]
  - Abdominal pain [Recovered/Resolved]
  - Abdominal distension [Unknown]
  - Wrong technique in product usage process [Unknown]
  - Bradycardia [Unknown]
  - Heart rate decreased [Unknown]
  - Nausea [Not Recovered/Not Resolved]
  - Asthenia [Not Recovered/Not Resolved]
  - Flushing [Unknown]
  - Pain [Unknown]
  - Blood pressure decreased [Unknown]
  - Contusion [Not Recovered/Not Resolved]
  - Diarrhoea [Recovered/Resolved]
  - Drug effect decreased [Unknown]
  - Abdominal infection [Unknown]
  - Tremor [Unknown]
  - Hot flush [Unknown]
  - Body temperature decreased [Unknown]
  - Malaise [Unknown]
  - Abdominal pain [Unknown]
  - Hyperhidrosis [Unknown]
  - Underdose [Unknown]
  - Muscle strain [Unknown]
  - Fatigue [Unknown]
  - Decreased appetite [Unknown]
  - Dyspepsia [Unknown]
  - Cough [Recovering/Resolving]
  - Intestinal obstruction [Unknown]
  - Blood pressure systolic increased [Unknown]
  - Vomiting [Recovered/Resolved]

NARRATIVE: CASE EVENT DATE: 20140110
